FAERS Safety Report 10538591 (Version 1)
Quarter: 2014Q4

REPORT INFORMATION
  Report Type: Spontaneous
  Country: CH (occurrence: CH)
  Receive Date: 20141023
  Receipt Date: 20141023
  Transmission Date: 20150529
  Serious: Yes (Life-Threatening, Hospitalization, Other)
  Sender: FDA-Public Use
  Company Number: CH-BRISTOL-MYERS SQUIBB COMPANY-21447545

PATIENT
  Age: 86 Year
  Sex: Female
  Weight: 71 kg

DRUGS (4)
  1. COLCHICINE. [Concomitant]
     Active Substance: COLCHICINE
  2. ASPIRIN. [Concomitant]
     Active Substance: ASPIRIN
  3. LISINOPRIL. [Concomitant]
     Active Substance: LISINOPRIL
  4. LITALIR CAPS [Suspect]
     Active Substance: HYDROXYUREA
     Indication: POLYCYTHAEMIA VERA
     Dosage: RE-INTRODUCED:27-JUN-2014
     Route: 048
     Dates: start: 20140508, end: 20140728

REACTIONS (3)
  - Alveolitis allergic [Recovered/Resolved]
  - Off label use [Unknown]
  - Gout [Recovered/Resolved]

NARRATIVE: CASE EVENT DATE: 20140708
